FAERS Safety Report 9485801 (Version 4)
Quarter: 2013Q4

REPORT INFORMATION
  Report Type: Report from Study
  Country: US (occurrence: US)
  Receive Date: 20130829
  Receipt Date: 20131024
  Transmission Date: 20140711
  Serious: Yes (Life-Threatening, Hospitalization)
  Sender: FDA-Public Use
  Company Number: US-ROCHE-1258259

PATIENT
  Age: 54 Year
  Sex: Female
  Weight: 207 kg

DRUGS (10)
  1. LUCENTIS [Suspect]
     Indication: DIABETIC RETINOPATHY
     Dosage: 0.3 MG IN LEFT EYE, LAST DOSE TAKEN ON 07/AUG/2013
     Route: 050
     Dates: start: 20130403
  2. LUCENTIS [Suspect]
     Indication: MACULAR OEDEMA
  3. INSULIN [Concomitant]
  4. LIPITOR [Concomitant]
  5. BABY ASPIRIN [Concomitant]
  6. BENICAR [Concomitant]
  7. CRESTOR [Concomitant]
     Route: 065
  8. PLAVIX [Concomitant]
     Dosage: DAILY
     Route: 065
  9. LANTUS [Concomitant]
     Route: 065
  10. NOVOLOG [Concomitant]
     Route: 065

REACTIONS (6)
  - Myocardial infarction [Recovered/Resolved]
  - Eye pain [Unknown]
  - Photopsia [Unknown]
  - Headache [Unknown]
  - Vision blurred [Unknown]
  - Lacrimation increased [Unknown]
